FAERS Safety Report 5712137-5 (Version None)
Quarter: 2008Q2

REPORT INFORMATION
  Report Type: 
  Country: None (occurrence: None)
  Receive Date: 20080417
  Receipt Date: 20080407
  Transmission Date: 20081010
  Serious: Yes (Hospitalization)
  Sender: FDA-Public Use
  Company Number: CERZ-1000174

PATIENT
  Age: 16 Year
  Sex: Female
  Weight: 32.2 kg

DRUGS (2)
  1. CEREZYME [Suspect]
     Indication: GAUCHER'S DISEASE
     Dosage: 6000 U, Q2W, INTRAVENOUS, 90 U/KG, Q2W, INTRAVENOUS, 2600 U, Q2W, INTRAVENOUS
     Route: 042
     Dates: start: 19970522, end: 20010801
  2. CEREZYME [Suspect]
     Indication: GAUCHER'S DISEASE
     Dosage: 6000 U, Q2W, INTRAVENOUS, 90 U/KG, Q2W, INTRAVENOUS, 2600 U, Q2W, INTRAVENOUS
     Route: 042
     Dates: start: 20010801

REACTIONS (4)
  - CARDIAC VALVE DISEASE [None]
  - CARDIO-RESPIRATORY ARREST [None]
  - POST PROCEDURAL COMPLICATION [None]
  - SPLEEN DISORDER [None]
